FAERS Safety Report 9781567 (Version 4)
Quarter: 2014Q1

REPORT INFORMATION
  Report Type: Spontaneous
  Country: FR (occurrence: FR)
  Receive Date: 20131224
  Receipt Date: 20140303
  Transmission Date: 20141002
  Serious: Yes (Other)
  Sender: FDA-Public Use
  Company Number: CHPA2013FR018206

PATIENT
  Age: 45 Year
  Sex: Male

DRUGS (5)
  1. SCOPODERM TTS [Suspect]
     Indication: OFF LABEL USE
     Dosage: 1 DF, ONCE/SINGLE
     Route: 062
     Dates: start: 20131202, end: 20131202
  2. SCOPODERM TTS [Suspect]
     Indication: SALIVARY HYPERSECRETION
  3. LYSANXIA [Concomitant]
  4. GAVISCON                           /01733101/ [Concomitant]
  5. FORLAX [Concomitant]

REACTIONS (3)
  - Bronchial obstruction [Recovered/Resolved]
  - Drug intolerance [Unknown]
  - Therapeutic response unexpected [Unknown]
